FAERS Safety Report 8989270 (Version 4)
Quarter: 2013Q4

REPORT INFORMATION
  Report Type: Spontaneous
  Country: MY (occurrence: None)
  Receive Date: 20121219
  Receipt Date: 20131113
  Transmission Date: 20140711
  Serious: Yes (Disabling)
  Sender: FDA-Public Use
  Company Number: DSA_61461_2012

PATIENT
  Sex: Male

DRUGS (4)
  1. 5-FU [Suspect]
     Indication: COLORECTAL CANCER
     Dosage: 400 MG/M2 1X/2 WEEKS
     Route: 040
     Dates: start: 20121008, end: 20121008
  2. AFLIBERCEPT [Suspect]
     Indication: COLORECTAL CANCER
     Dosage: 4 MG/KG 1X/2 WEEKS
     Route: 042
     Dates: start: 20121008, end: 20121008
  3. IRINOTECAN [Suspect]
     Indication: COLORECTAL CANCER
     Dosage: 180 MG/M2 1X/2 WEEKS
     Route: 041
     Dates: start: 20121008, end: 20121008
  4. LEUCOVORIN [Suspect]
     Indication: COLORECTAL CANCER
     Dosage: 400 MG/M2 1X/2 WEEKS
     Route: 041
     Dates: start: 20121008, end: 20121008

REACTIONS (3)
  - Skin reaction [None]
  - Skin hypopigmentation [None]
  - Skin ulcer [None]
